FAERS Safety Report 6265407-9 (Version None)
Quarter: 2009Q3

REPORT INFORMATION
  Report Type: 
  Country: None (occurrence: None)
  Receive Date: 20090713
  Receipt Date: 20090707
  Transmission Date: 20100115
  Serious: Yes (Disabling)
  Sender: FDA-Public Use
  Company Number: DK-BRISTOL-MYERS SQUIBB COMPANY-14659791

PATIENT

DRUGS (2)
  1. REYATAZ [Suspect]
     Dosage: COURSE :1 ; DOSE UNIT-MILILITRE
     Route: 064
  2. KIVEXA [Suspect]
     Route: 064

REACTIONS (1)
  - CEREBRAL DISORDER [None]
